FAERS Safety Report 13503903 (Version 2)
Quarter: 2017Q2

REPORT INFORMATION
  Report Type: Report from Study
  Country: CN (occurrence: CN)
  Receive Date: 20170502
  Receipt Date: 20170512
  Transmission Date: 20170830
  Serious: Yes (Hospitalization)
  Sender: FDA-Public Use
  Company Number: CN-B.I. PHARMACEUTICALS,INC./RIDGEFIELD-2017-BI-021143

PATIENT
  Age: 52 Year
  Sex: Female
  Weight: 65 kg

DRUGS (4)
  1. AFATINIB [Suspect]
     Active Substance: AFATINIB
     Indication: NON-SMALL CELL LUNG CANCER
     Route: 048
     Dates: start: 20160803
  2. AFATINIB [Suspect]
     Active Substance: AFATINIB
     Route: 048
     Dates: start: 20170213
  3. AFATINIB [Suspect]
     Active Substance: AFATINIB
     Dosage: STRENGTH: 40MG, 30MG, 20MG
     Route: 048
     Dates: start: 20170406, end: 20170416
  4. AFATINIB [Suspect]
     Active Substance: AFATINIB
     Route: 048
     Dates: start: 20160908

REACTIONS (1)
  - Pleural effusion [Recovered/Resolved]

NARRATIVE: CASE EVENT DATE: 20170406
